FAERS Safety Report 4366045-5 (Version None)
Quarter: 2004Q2

REPORT INFORMATION
  Report Type: 
  Country: None (occurrence: None)
  Receive Date: 20040527
  Receipt Date: 20040514
  Transmission Date: 20050107
  Serious: Yes (Death)
  Sender: FDA-Public Use
  Company Number: 200411957FR

PATIENT
  Age: 80 Year
  Sex: Male

DRUGS (7)
  1. DAONIL [Suspect]
     Indication: DIABETES MELLITUS NON-INSULIN-DEPENDENT
     Route: 048
  2. ZOCOR [Suspect]
     Indication: ATHEROSCLEROSIS
     Route: 048
  3. ZOCOR [Suspect]
     Indication: HYPERCHOLESTEROLAEMIA
     Route: 048
  4. SINTROM [Suspect]
     Indication: ARRHYTHMIA SUPRAVENTRICULAR
     Route: 048
     Dates: end: 20030319
  5. DIGOXIN [Concomitant]
     Route: 048
  6. LOPRIL [Concomitant]
     Indication: ESSENTIAL HYPERTENSION
     Route: 048
  7. GLUCOR [Concomitant]
     Indication: DIABETES MELLITUS NON-INSULIN-DEPENDENT
     Route: 048

REACTIONS (11)
  - APHASIA [None]
  - BLOOD PRESSURE SYSTOLIC INCREASED [None]
  - CEREBRAL HAEMORRHAGE [None]
  - DRUG INTERACTION [None]
  - DYSARTHRIA [None]
  - HEADACHE [None]
  - INTERNATIONAL NORMALISED RATIO INCREASED [None]
  - INTRAVENTRICULAR HAEMORRHAGE [None]
  - MENINGORRHAGIA [None]
  - NERVOUS SYSTEM DISORDER [None]
  - VOMITING [None]
